FAERS Safety Report 5554439-1 (Version None)
Quarter: 2007Q4

REPORT INFORMATION
  Report Type: 
  Country: None (occurrence: None)
  Receive Date: 20071213
  Receipt Date: 20071210
  Transmission Date: 20080405
  Serious: Yes (Other)
  Sender: FDA-Public Use
  Company Number: GR-BRISTOL-MYERS SQUIBB COMPANY-14009831

PATIENT
  Age: 28 Year
  Sex: Female

DRUGS (4)
  1. CYCLOPHOSPHAMIDE [Suspect]
     Route: 042
  2. METHOTREXATE [Suspect]
  3. BUSULFAN [Suspect]
     Route: 048
  4. CYCLOSPORINE [Suspect]

REACTIONS (5)
  - GRAFT VERSUS HOST DISEASE [None]
  - HORMONE LEVEL ABNORMAL [None]
  - OVARIAN FAILURE [None]
  - UTERINE HAEMORRHAGE [None]
  - VAGINAL DISORDER [None]
